FAERS Safety Report 8845057 (Version 1)
Quarter: 2012Q4

REPORT INFORMATION
  Report Type: Spontaneous
  Country: US (occurrence: None)
  Receive Date: 20120925
  Receipt Date: 20120925
  Transmission Date: 20130627
  Serious: Yes (Hospitalization, Other)
  Sender: FDA-Public Use
  Company Number: RB-32663-2011

PATIENT
  Age: 25 Year
  Sex: Female

DRUGS (4)
  1. SUBOXONE [Suspect]
     Indication: DRUG DEPENDENCE
     Dosage: Was prescribed 24 mg daily, but only taking it when she thought she needed it Sublingual)
     Route: 060
     Dates: start: 201108
  2. SUBOXONE [Suspect]
     Indication: DRUG DEPENDENCE
     Dosage: (24 mg, taking it as prescribed, 24 mg daily Sublingual)
     Route: 060
  3. SUBOXONE [Suspect]
     Indication: DRUG DEPENDENCE
     Dosage: 10 mg in the morning
     Route: 060
  4. SUBOXONE [Suspect]
     Indication: DRUG DEPENDENCE
     Dosage: 12 mg in the evening
     Route: 060

REACTIONS (5)
  - Underdose [None]
  - Pneumonia [None]
  - Oxygen saturation decreased [None]
  - Vomiting [None]
  - Wrong technique in drug usage process [None]
